FAERS Safety Report 7375012-9 (Version None)
Quarter: 2011Q1

REPORT INFORMATION
  Report Type: 
  Country: None (occurrence: None)
  Receive Date: 20110325
  Receipt Date: 20110314
  Transmission Date: 20110831
  Serious: Yes (Other)
  Sender: FDA-Public Use
  Company Number: PHFR2010GB05846

PATIENT
  Sex: Female

DRUGS (6)
  1. PIRENZEPINE [Concomitant]
     Dosage: 150 MG, UNK
     Route: 065
  2. DIAZEPAM [Concomitant]
     Dosage: 6 MG, UNK
     Route: 065
  3. SIMVASTATIN [Concomitant]
     Dosage: 20 MG, UNK
     Route: 065
  4. OMEPRAZOLE [Concomitant]
     Dosage: 20 MG, UNK
     Route: 065
  5. SERTRALINE HYDROCHLORIDE [Concomitant]
     Indication: BIPOLAR DISORDER
     Dosage: 150 MG, UNK
     Route: 065
  6. CLOZARIL [Suspect]
     Indication: SCHIZOPHRENIA
     Dosage: 250 MG, UNK
     Route: 048
     Dates: start: 20090414

REACTIONS (4)
  - NEOPLASM MALIGNANT [None]
  - ABDOMINAL MASS [None]
  - OVARIAN MASS [None]
  - HAEMOGLOBIN DECREASED [None]
